FAERS Safety Report 8652322 (Version 2)
Quarter: 2012Q4

REPORT INFORMATION
  Report Type: 
  Country: US (occurrence: US)
  Receive Date: 20120706
  Receipt Date: 20120925
  Transmission Date: 20130627
  Serious: Yes (Hospitalization, Other)
  Sender: FDA-Public Use
  Company Number: US-PFIZER INC-2012161137

PATIENT
  Age: 46 Year
  Sex: Female

DRUGS (1)
  1. CHANTIX [Suspect]
     Dosage: UNK
     Dates: start: 200805, end: 2009

REACTIONS (7)
  - Suicide attempt [Unknown]
  - Suicide attempt [Unknown]
  - Bipolar disorder [Recovered/Resolved]
  - Depression [Recovered/Resolved]
  - Anxiety [Unknown]
  - Nightmare [Unknown]
  - Alcoholism [Unknown]
